FAERS Safety Report 24238770 (Version 1)
Quarter: 2024Q3

REPORT INFORMATION
  Report Type: Spontaneous
  Country: US (occurrence: None)
  Receive Date: 20240822
  Receipt Date: 20240822
  Transmission Date: 20241017
  Serious: Yes (Hospitalization)
  Sender: Public
  Company Number: None

PATIENT
  Sex: Male

DRUGS (8)
  1. TACROLIMUS [Suspect]
     Active Substance: TACROLIMUS
     Indication: Chronic kidney disease
     Dosage: OTHER QUANTITY : TAKE 6 CAPSULE IN AM/6 CAPSULES IN PM;?FREQUENCY : DAILY;?
     Route: 048
     Dates: start: 20220616
  2. DOXAZOSIN [Concomitant]
     Active Substance: DOXAZOSIN MESYLATE
  3. EPINEPHRINE [Concomitant]
     Active Substance: EPINEPHRINE
  4. METOPROLOL TARTRATE [Concomitant]
     Active Substance: METOPROLOL TARTRATE
  5. NIFEDIPINE [Concomitant]
     Active Substance: NIFEDIPINE
  6. OMEGA-3 ACIDS [Concomitant]
     Active Substance: OMEGA-3 FATTY ACIDS
  7. OMEPRAZOLE [Concomitant]
     Active Substance: OMEPRAZOLE
  8. QVAR REDIHA AER [Concomitant]

REACTIONS (2)
  - Blood glucose increased [None]
  - Therapy interrupted [None]
